FAERS Safety Report 18646330 (Version 2)
Quarter: 2020Q4

REPORT INFORMATION
  Report Type: Spontaneous
  Country: US (occurrence: US)
  Receive Date: 20201222
  Receipt Date: 20201229
  Transmission Date: 20210114
  Serious: No
  Sender: FDA-Public Use
  Company Number: US-JNJFOC-20201222865

PATIENT
  Age: 83 Year
  Sex: Female
  Weight: 63.56 kg

DRUGS (2)
  1. ZYRTEC [Suspect]
     Active Substance: CETIRIZINE HYDROCHLORIDE
     Indication: SNEEZING
  2. ZYRTEC [Suspect]
     Active Substance: CETIRIZINE HYDROCHLORIDE
     Indication: RHINORRHOEA
     Dosage: 3 TOTAL?LAST DOSE 9-DEC-2020
     Route: 048
     Dates: start: 20201208

REACTIONS (1)
  - Rhinorrhoea [Not Recovered/Not Resolved]
